FAERS Safety Report 9856364 (Version 2)
Quarter: 2014Q1

REPORT INFORMATION
  Report Type: Spontaneous
  Country: DE (occurrence: DE)
  Receive Date: 20140130
  Receipt Date: 20140328
  Transmission Date: 20141002
  Serious: Yes (Life-Threatening, Hospitalization)
  Sender: FDA-Public Use
  Company Number: DE-BRISTOL-MYERS SQUIBB COMPANY-20092995

PATIENT
  Age: 88 Year
  Sex: Female
  Weight: 58 kg

DRUGS (1)
  1. ELIQUIS [Suspect]
     Route: 048
     Dates: start: 20131129, end: 20131205

REACTIONS (3)
  - Haematoma [Unknown]
  - Compartment syndrome [Recovered/Resolved]
  - Fall [Unknown]
